FAERS Safety Report 25123320 (Version 2)
Quarter: 2025Q2

REPORT INFORMATION
  Report Type: Spontaneous
  Country: US (occurrence: US)
  Receive Date: 20250326
  Receipt Date: 20250404
  Transmission Date: 20250716
  Serious: Yes (Hospitalization, Other)
  Sender: AUROBINDO
  Company Number: US-MLMSERVICE-20250305-PI436881-00145-1

PATIENT
  Age: 21 Year
  Sex: Female

DRUGS (4)
  1. BUPIVACAINE HYDROCHLORIDE [Suspect]
     Active Substance: BUPIVACAINE HYDROCHLORIDE
     Indication: Epidural anaesthesia
     Route: 008
  2. BUPIVACAINE HYDROCHLORIDE [Suspect]
     Active Substance: BUPIVACAINE HYDROCHLORIDE
     Indication: Epidural anaesthesia
     Dosage: 8 MILLILITER, EVERY HOUR (EPIDURAL INFUSION STARTED AT A RATE OF 8ML/HR)
     Route: 008
  3. FENTANYL [Suspect]
     Active Substance: FENTANYL
     Indication: Epidural anaesthesia
     Dosage: 8 MILLILITER, EVERY HOUR (EPIDURAL INFUSION AT RATE OF 8ML/HR.)
     Route: 008
  4. EPINEPHRINE\LIDOCAINE HYDROCHLORIDE [Concomitant]
     Active Substance: EPINEPHRINE\LIDOCAINE HYDROCHLORIDE
     Indication: Epidural anaesthesia
     Route: 008

REACTIONS (2)
  - Facial paralysis [Recovered/Resolved]
  - Muscular weakness [Recovered/Resolved]
